FAERS Safety Report 6378045-4 (Version None)
Quarter: 2009Q3

REPORT INFORMATION
  Report Type: 
  Country: None (occurrence: None)
  Receive Date: 20090925
  Receipt Date: 20090921
  Transmission Date: 20100115
  Serious: Yes (Life-Threatening, Hospitalization, Other)
  Sender: FDA-Public Use
  Company Number: PHHO2009US07133

PATIENT
  Sex: Male
  Weight: 118 kg

DRUGS (10)
  1. TASIGNA [Suspect]
     Indication: CHRONIC MYELOID LEUKAEMIA
     Dosage: 800 MG, QD
     Route: 048
     Dates: start: 20080820, end: 20080828
  2. TASIGNA [Suspect]
     Dosage: NO TREATMENT
     Dates: start: 20080829, end: 20080911
  3. TASIGNA [Suspect]
     Dosage: 400 MG, QD
     Route: 048
     Dates: start: 20080912, end: 20090529
  4. TASIGNA [Suspect]
     Dosage: NO TREATMENT
     Dates: start: 20090530, end: 20090901
  5. TASIGNA [Suspect]
     Dosage: 400 MG, QD
     Route: 048
     Dates: start: 20090902
  6. DILTIAZEM [Concomitant]
  7. LISINOPRIL [Concomitant]
  8. METFORMIN HCL [Concomitant]
  9. GLYBURIDE [Concomitant]
  10. ASPIRIN [Concomitant]

REACTIONS (55)
  - ABDOMINAL DISTENSION [None]
  - AORTIC STENOSIS [None]
  - AORTIC VALVE CALCIFICATION [None]
  - AORTIC VALVE REPLACEMENT [None]
  - ARTERIOSCLEROSIS CORONARY ARTERY [None]
  - ASCITES [None]
  - ATELECTASIS [None]
  - ATRIAL FIBRILLATION [None]
  - ATRIAL FLUTTER [None]
  - ATRIOVENTRICULAR BLOCK FIRST DEGREE [None]
  - BLOODY DISCHARGE [None]
  - CANDIDIASIS [None]
  - CARDIAC FAILURE CONGESTIVE [None]
  - CARDIAC HYPERTROPHY [None]
  - CARDIOMEGALY [None]
  - CARDIOVERSION [None]
  - CATHETERISATION CARDIAC [None]
  - CONCOMITANT DISEASE PROGRESSION [None]
  - COUGH [None]
  - DEBRIDEMENT [None]
  - DILATATION ATRIAL [None]
  - DYSPNOEA EXERTIONAL [None]
  - ELECTROCARDIOGRAM PQ INTERVAL PROLONGED [None]
  - ELECTROCARDIOGRAM QT PROLONGED [None]
  - ENTEROCOCCAL INFECTION [None]
  - EPISTAXIS [None]
  - FLUID OVERLOAD [None]
  - GENERAL PHYSICAL HEALTH DETERIORATION [None]
  - GRANULOMA [None]
  - HEPATIC CIRRHOSIS [None]
  - HYPERLIPIDAEMIA [None]
  - HYPOTENSION [None]
  - HYPOXIA [None]
  - ILEUS [None]
  - LEFT VENTRICULAR HYPERTROPHY [None]
  - LIPASE INCREASED [None]
  - LUNG INFILTRATION [None]
  - MASS [None]
  - OEDEMA PERIPHERAL [None]
  - OROPHARYNGEAL PAIN [None]
  - PHARYNGITIS [None]
  - PLEURAL EFFUSION [None]
  - PSEUDOMONAS INFECTION [None]
  - PULMONARY CONGESTION [None]
  - PULMONARY OEDEMA [None]
  - PYREXIA [None]
  - RENAL FAILURE [None]
  - RESPIRATORY DISTRESS [None]
  - RESPIRATORY FAILURE [None]
  - SEPSIS [None]
  - STERNAL FRACTURE [None]
  - TRICUSPID VALVE INCOMPETENCE [None]
  - URINARY TRACT INFECTION FUNGAL [None]
  - URINE OUTPUT DECREASED [None]
  - WOUND INFECTION [None]
